FAERS Safety Report 7292548-X (Version None)
Quarter: 2011Q1

REPORT INFORMATION
  Report Type: 
  Country: None (occurrence: None)
  Receive Date: 20110215
  Receipt Date: 20110208
  Transmission Date: 20110831
  Serious: Yes (Life-Threatening)
  Sender: FDA-Public Use
  Company Number: JP-BAYER-2011-008941

PATIENT
  Age: 41 Year
  Sex: Female
  Weight: 54 kg

DRUGS (16)
  1. ASPIRIN [Suspect]
     Indication: TRANSIENT ISCHAEMIC ATTACK
     Dosage: DAILY DOSE 100 MG
     Route: 048
     Dates: start: 20110111, end: 20110123
  2. TAKEPRON [Suspect]
     Indication: REFLUX OESOPHAGITIS
     Dosage: DAILY DOSE 30 MG
     Route: 048
     Dates: start: 20101224, end: 20110124
  3. PREDONINE [Concomitant]
     Dosage: DAILY DOSE 75 MG
     Route: 041
     Dates: start: 20110104, end: 20110106
  4. PREDONINE [Concomitant]
     Dosage: DAILY DOSE 50 MG
     Route: 048
     Dates: start: 20110113, end: 20110115
  5. FUNGIZONE [Concomitant]
     Dosage: UNK
     Route: 048
     Dates: start: 20101227
  6. FOSAMAC [Suspect]
     Indication: OSTEOPOROSIS PROPHYLAXIS
     Dosage: DAILY DOSE 35 MG
     Route: 048
     Dates: start: 20101224, end: 20110125
  7. PREDONINE [Concomitant]
     Dosage: DAILY DOSE 60 MG
     Route: 048
     Dates: start: 20110107, end: 20110109
  8. PREDONINE [Concomitant]
     Dosage: DAILY DOSE 55 MG
     Route: 048
     Dates: start: 20110110, end: 20110112
  9. PREDONINE [Concomitant]
     Dosage: DAILY DOSE 35 MG
     Route: 048
     Dates: start: 20110122, end: 20110202
  10. PREDONINE [Concomitant]
     Indication: STILL'S DISEASE ADULT ONSET
     Dosage: DAILY DOSE 45 MG
     Route: 048
     Dates: start: 20101217, end: 20101219
  11. PREDONINE [Concomitant]
     Dosage: DAILY DOSE 40 MG
     Route: 048
     Dates: start: 20110119, end: 20110121
  12. BENAMBAX [Suspect]
     Indication: ANTIFUNGAL PROPHYLAXIS
     Dosage: UNK
     Route: 055
     Dates: start: 20101228, end: 20101228
  13. PREDONINE [Concomitant]
     Dosage: DAILY DOSE 30 MG
     Route: 048
     Dates: start: 20110203
  14. LIPITOR [Suspect]
     Indication: HYPERLIPIDAEMIA
     Dosage: 10 MG, QD
     Route: 048
     Dates: start: 20101228, end: 20110123
  15. PREDONINE [Concomitant]
     Dosage: DAILY DOSE 90 MG
     Dates: start: 20101220, end: 20110103
  16. PREDONINE [Concomitant]
     Dosage: DAILY DOSE 45 MG
     Route: 048
     Dates: start: 20110116, end: 20110118

REACTIONS (1)
  - AGRANULOCYTOSIS [None]
